FAERS Safety Report 9636979 (Version 1)
Quarter: 2013Q4

REPORT INFORMATION
  Report Type: Spontaneous
  Country: US (occurrence: US)
  Receive Date: 20131022
  Receipt Date: 20131022
  Transmission Date: 20140711
  Serious: Yes (Hospitalization)
  Sender: FDA-Public Use
  Company Number: US-GLENMARK GENERICS INC.-2013GMK007134

PATIENT
  Age: 21 Year
  Sex: Male

DRUGS (3)
  1. CITALOPRAM HYDROBROMIDE [Suspect]
     Indication: PRODUCT USED FOR UNKNOWN INDICATION
     Dosage: EXACT DOSE UNKNOWN - POTENTIAL MAXIMUM INGESTION OF 11.6G
  2. OLANZAPINE [Suspect]
     Indication: PRODUCT USED FOR UNKNOWN INDICATION
     Dosage: EXACT DOSE UNKNOWN - POTENTIAL MAXIMUM INGESTION OF 600MG
  3. CLONAZEPAM [Concomitant]
     Indication: PRODUCT USED FOR UNKNOWN INDICATION
     Dosage: EXACT DOSE UNKNOWN - POTENTIAL MAXIMUM INGESTION OF 5MG

REACTIONS (14)
  - Overdose [Recovering/Resolving]
  - Drug level above therapeutic [Recovering/Resolving]
  - Unresponsive to stimuli [Recovering/Resolving]
  - Blood creatine phosphokinase increased [Recovering/Resolving]
  - Electrocardiogram QRS complex prolonged [Recovering/Resolving]
  - Hypotension [Recovering/Resolving]
  - Bradycardia [Recovering/Resolving]
  - Convulsion [Recovering/Resolving]
  - Cardiotoxicity [Recovering/Resolving]
  - Rales [Recovering/Resolving]
  - Blood lactic acid increased [Recovering/Resolving]
  - Neurotoxicity [Recovering/Resolving]
  - Posture abnormal [Recovering/Resolving]
  - Miosis [Recovering/Resolving]
